FAERS Safety Report 5159342-7 (Version None)
Quarter: 2006Q4

REPORT INFORMATION
  Report Type: 
  Country: None (occurrence: None)
  Receive Date: 20061120
  Receipt Date: 20061024
  Transmission Date: 20070319
  Serious: Yes (Death)
  Sender: FDA-Public Use
  Company Number: PAR_0929_2006

PATIENT
  Age: 21 Year
  Sex: Male

DRUGS (4)
  1. CLONAZEPAM [Suspect]
     Dosage: DF PO
     Route: 048
  2. ACETAMINOPHEN [Suspect]
     Dosage: DF PO
     Route: 048
  3. ETHANOL [Suspect]
     Dosage: DF PO
     Route: 048
  4. ASPIRIN [Suspect]
     Dosage: DF PO
     Route: 048

REACTIONS (9)
  - ARRHYTHMIA [None]
  - BLOOD PH DECREASED [None]
  - BLOOD PRESSURE ABNORMAL [None]
  - BLOOD PRESSURE DECREASED [None]
  - BRADYCARDIA [None]
  - CARDIAC ARREST [None]
  - COMPLETED SUICIDE [None]
  - GENERAL PHYSICAL HEALTH DETERIORATION [None]
  - POISONING [None]
